FAERS Safety Report 6198828-3 (Version None)
Quarter: 2009Q2

REPORT INFORMATION
  Report Type: 
  Country: None (occurrence: None)
  Receive Date: 20090522
  Receipt Date: 20090511
  Transmission Date: 20091009
  Serious: Yes (Life-Threatening, Hospitalization, Disabling, Other)
  Sender: FDA-Public Use
  Company Number: GB-RANBAXY-2009RR-23804

PATIENT
  Age: 57 Year
  Sex: Female
  Weight: 65 kg

DRUGS (8)
  1. CITALOPRAM HYDROBROMIDE [Suspect]
     Indication: DEPRESSION
     Dosage: 20 MG, UNK
     Route: 048
     Dates: start: 20090202, end: 20090205
  2. METRONIDAZOLE [Suspect]
     Indication: PROPHYLAXIS
     Dosage: 200 MG, TID
     Route: 048
     Dates: start: 20090202, end: 20090205
  3. METRONIDAZOLE [Suspect]
     Indication: TOOTH DISORDER
  4. BENDROFLUMETHIAZIDE [Concomitant]
     Indication: HYPERTENSION
     Dosage: 2.5 MG, QD
     Route: 048
     Dates: start: 20050101, end: 20090205
  5. MAGNESIUM SULFATE [Concomitant]
  6. MENOPACE [Concomitant]
  7. PARACETAMOL [Concomitant]
  8. RAMIPRIL [Concomitant]
     Indication: HYPERTENSION
     Dosage: 2.5 MG, QD
     Route: 048
     Dates: start: 20060101, end: 20090205

REACTIONS (10)
  - BLOOD SODIUM DECREASED [None]
  - CENTRAL PONTINE MYELINOLYSIS [None]
  - CONVULSION [None]
  - DRUG INTERACTION [None]
  - FEELING HOT [None]
  - GAIT DISTURBANCE [None]
  - HYPONATRAEMIA [None]
  - MEMORY IMPAIRMENT [None]
  - THIRST [None]
  - VOMITING [None]
